FAERS Safety Report 8813276 (Version 1)
Quarter: 2012Q4

REPORT INFORMATION
  Report Type: 
  Country: US (occurrence: US)
  Receive Date: 20120927
  Receipt Date: 20120927
  Transmission Date: 20130627
  Serious: No
  Sender: FDA-Public Use
  Company Number: US-AMGEN-USASP2012037365

PATIENT
  Age: 82 Year
  Sex: Female

DRUGS (5)
  1. PROLIA [Suspect]
     Indication: OSTEOPOROSIS POSTMENOPAUSAL
     Dosage: 60 mg, UNK
     Route: 058
     Dates: start: 20111119, end: 20120523
  2. SYNTHROID [Concomitant]
     Indication: HYPOTHYROIDISM
     Dosage: UNK UNK, qd
     Route: 048
     Dates: start: 1986
  3. SIMVASTATIN [Concomitant]
     Indication: HYPERLIPIDAEMIA
     Dosage: UNK UNK, qd
     Route: 048
     Dates: start: 2009
  4. PANTOPRAZOLE [Concomitant]
     Indication: GASTROOESOPHAGEAL REFLUX DISEASE
     Dosage: UNK UNK, qd
     Route: 048
     Dates: start: 2007
  5. DITROPAN [Concomitant]
     Indication: BLADDER DYSFUNCTION
     Dosage: UNK UNK, qd
     Route: 048
     Dates: start: 1983

REACTIONS (1)
  - Osteoma cutis [Not Recovered/Not Resolved]
